FAERS Safety Report 24769009 (Version 7)
Quarter: 2025Q4

REPORT INFORMATION
  Report Type: Spontaneous
  Country: JP (occurrence: JP)
  Receive Date: 20241224
  Receipt Date: 20251002
  Transmission Date: 20260118
  Serious: Yes (Other)
  Sender: ASTELLAS
  Company Number: JP-ASTELLAS-2024-AER-005094

PATIENT
  Age: 7 Decade
  Sex: Male
  Weight: 55 kg

DRUGS (2)
  1. PADCEV [Suspect]
     Active Substance: ENFORTUMAB VEDOTIN-EJFV
     Indication: Malignant neoplasm of renal pelvis
     Route: 065
     Dates: start: 20240822
  2. DIPHENHYDRAMINE [Concomitant]
     Active Substance: DIPHENHYDRAMINE
     Indication: Rash
     Route: 065

REACTIONS (9)
  - Loss of consciousness [Recovered/Resolved]
  - Neuropathy peripheral [Recovered/Resolved]
  - Squamous cell carcinoma of lung [Recovering/Resolving]
  - Rash [Recovering/Resolving]
  - Anal incontinence [Recovered/Resolved]
  - Dry skin [Recovering/Resolving]
  - Taste disorder [Not Recovered/Not Resolved]
  - Abdominal pain [Recovered/Resolved]
  - Weight decreased [Not Recovered/Not Resolved]

NARRATIVE: CASE EVENT DATE: 20241003
